FAERS Safety Report 22627367 (Version 1)
Quarter: 2023Q2

REPORT INFORMATION
  Report Type: Spontaneous
  Country: US (occurrence: US)
  Receive Date: 20230622
  Receipt Date: 20230622
  Transmission Date: 20230722
  Serious: No
  Sender: FDA-Public Use
  Company Number: US-ELI_LILLY_AND_COMPANY-US202306013134

PATIENT
  Age: 68 Year
  Sex: Female

DRUGS (2)
  1. TRULICITY [Suspect]
     Active Substance: DULAGLUTIDE
     Indication: Blood glucose
     Dosage: 0.75 MG, WEEKLY (1/W)
     Route: 065
  2. INSULIN ASPART [Concomitant]
     Active Substance: INSULIN ASPART
     Indication: Blood glucose
     Dosage: UNK UNK, BID(70 UNITS AND 30 UNITS)
     Route: 065

REACTIONS (1)
  - Perineal pain [Recovering/Resolving]

NARRATIVE: CASE EVENT DATE: 20220901
